FAERS Safety Report 7057060-1 (Version None)
Quarter: 2010Q4

REPORT INFORMATION
  Report Type: 
  Country: None (occurrence: None)
  Receive Date: 20101022
  Receipt Date: 20101006
  Transmission Date: 20110411
  Serious: Yes (Hospitalization)
  Sender: FDA-Public Use
  Company Number: US-BAYER-201034708NA

PATIENT
  Age: 25 Year
  Sex: Female
  Weight: 57 kg

DRUGS (5)
  1. YAZ [Suspect]
     Indication: PELVIC PAIN
     Route: 048
     Dates: start: 20090624, end: 20090901
  2. YASMIN [Suspect]
     Indication: PELVIC PAIN
     Route: 048
     Dates: start: 20090624, end: 20090901
  3. PRILOSEC [Concomitant]
     Dosage: QAM X 30D
     Route: 048
     Dates: start: 20090907
  4. TERCONAZOLE [Concomitant]
  5. DOXYCYCLINE HYC [Concomitant]

REACTIONS (4)
  - DIZZINESS [None]
  - DYSPNOEA [None]
  - PULMONARY EMBOLISM [None]
  - TACHYCARDIA [None]
